FAERS Safety Report 7797724-5 (Version None)
Quarter: 2011Q4

REPORT INFORMATION
  Report Type: 
  Country: None (occurrence: None)
  Receive Date: 20111005
  Receipt Date: 20110929
  Transmission Date: 20120403
  Serious: Yes (Other)
  Sender: FDA-Public Use
  Company Number: PHHY2010CA76913

PATIENT
  Sex: Male

DRUGS (3)
  1. SANDOSTATIN LAR [Suspect]
     Dosage: 30 MG ONCE A MONTH
     Route: 030
  2. SANDOSTATIN LAR [Suspect]
     Indication: NEOPLASM MALIGNANT
     Dosage: 40 MG, QMO
     Route: 030
     Dates: start: 20101111
  3. SANDOSTATIN LAR [Suspect]
     Dosage: 40 MG, EVERY 4 WEEKS
     Route: 030

REACTIONS (10)
  - GASTROINTESTINAL DISORDER POSTOPERATIVE [None]
  - BLOOD PRESSURE INCREASED [None]
  - INFECTION [None]
  - FLATULENCE [None]
  - WEIGHT INCREASED [None]
  - GALLBLADDER PERFORATION [None]
  - HAEMOGLOBIN DECREASED [None]
  - INJECTION SITE HAEMORRHAGE [None]
  - DIARRHOEA [None]
  - DYSPEPSIA [None]
